FAERS Safety Report 15665601 (Version 1)
Quarter: 2018Q4

REPORT INFORMATION
  Report Type: Spontaneous
  Country: DE (occurrence: DE)
  Receive Date: 20181128
  Receipt Date: 20181128
  Transmission Date: 20190205
  Serious: Yes (Hospitalization, Other)
  Sender: FDA-Public Use
  Company Number: IND-DE-009507513-1811DEU008087

PATIENT
  Age: 35 Year
  Sex: Female

DRUGS (6)
  1. BEMFOLA [Suspect]
     Active Substance: FOLLITROPIN
     Indication: CONTROLLED OVARIAN STIMULATION
     Dosage: UNK
  2. LUVERIS [Suspect]
     Active Substance: LUTROPIN ALFA
     Indication: CONTROLLED OVARIAN STIMULATION
     Dosage: UNK
  3. L-THYROX JOD [Concomitant]
     Active Substance: LEVOTHYROXINE SODIUM\POTASSIUM IODIDE
     Dosage: UNK
  4. INSULIN [Concomitant]
     Active Substance: INSULIN NOS
     Dosage: UNK
  5. ELONVA [Suspect]
     Active Substance: CORIFOLLITROPIN ALFA
     Indication: CONTROLLED OVARIAN STIMULATION
     Dosage: UNK
  6. METFORMIN [Concomitant]
     Active Substance: METFORMIN HYDROCHLORIDE
     Dosage: UNK

REACTIONS (4)
  - Stress cardiomyopathy [Recovered/Resolved]
  - Shock symptom [Recovered/Resolved]
  - Extrasystoles [Recovered/Resolved]
  - Circulatory collapse [Recovered/Resolved]

NARRATIVE: CASE EVENT DATE: 20180702
